FAERS Safety Report 24404935 (Version 1)
Quarter: 2024Q4

REPORT INFORMATION
  Report Type: Spontaneous
  Country: US (occurrence: None)
  Receive Date: 20241004
  Receipt Date: 20241004
  Transmission Date: 20250115
  Serious: Yes (Other)
  Sender: Public
  Company Number: None

PATIENT
  Age: 40 Year
  Sex: Female

DRUGS (2)
  1. GANIRELIX [Suspect]
     Active Substance: GANIRELIX
     Dosage: 0.5 ML DAILY SUBCUTANEOUS
     Route: 058
     Dates: start: 20241003, end: 20241003
  2. OMNITROPE [Suspect]
     Active Substance: SOMATROPIN

REACTIONS (11)
  - Abdominal distension [None]
  - Abdominal pain [None]
  - Chest discomfort [None]
  - Infarction [None]
  - Dyspnoea [None]
  - Restlessness [None]
  - Chest pain [None]
  - Urine ketone body present [None]
  - Anxiety [None]
  - Panic attack [None]
  - Heart rate abnormal [None]

NARRATIVE: CASE EVENT DATE: 20241003
